FAERS Safety Report 6273539-4 (Version None)
Quarter: 2009Q3

REPORT INFORMATION
  Report Type: 
  Country: None (occurrence: None)
  Receive Date: 20090715
  Receipt Date: 20090120
  Transmission Date: 20100115
  Serious: Yes (Other)
  Sender: FDA-Public Use
  Company Number: US-JNJFOC-20090105477

PATIENT
  Age: 15 Year
  Sex: Female
  Weight: 44.4525 kg

DRUGS (2)
  1. MOTRIN IB [Suspect]
     Indication: OROPHARYNGEAL PAIN
     Dosage: 200 MG, 1 IN 1 TOTAL, ORAL ; 200 MG, 1 IN 1 TOTAL, ORAL
     Route: 048
     Dates: start: 20081225, end: 20081225
  2. MOTRIN IB [Suspect]
     Indication: OROPHARYNGEAL PAIN
     Dosage: 200 MG, 1 IN 1 TOTAL, ORAL ; 200 MG, 1 IN 1 TOTAL, ORAL
     Route: 048
     Dates: start: 20090120, end: 20090120

REACTIONS (1)
  - HYPERSENSITIVITY [None]
